FAERS Safety Report 19455628 (Version 2)
Quarter: 2021Q2

REPORT INFORMATION
  Report Type: Spontaneous
  Country: US (occurrence: US)
  Receive Date: 20210623
  Receipt Date: 20210630
  Transmission Date: 20210717
  Serious: No
  Sender: FDA-Public Use
  Company Number: US-GRANULES-US-2021GRASPO00350

PATIENT
  Sex: Male

DRUGS (1)
  1. IBUPROFEN. [Suspect]
     Active Substance: IBUPROFEN
     Indication: ANALGESIC THERAPY
     Route: 065

REACTIONS (5)
  - Tremor [Unknown]
  - Neuralgia [Unknown]
  - Drug ineffective [Unknown]
  - Speech disorder [Unknown]
  - Pain [Unknown]
